FAERS Safety Report 9478758 (Version 2)
Quarter: 2013Q4

REPORT INFORMATION
  Report Type: Other
  Country: FR (occurrence: FR)
  Receive Date: 20130827
  Receipt Date: 20131024
  Transmission Date: 20140711
  Serious: Yes (Hospitalization)
  Sender: FDA-Public Use
  Company Number: FR-JHP PHARMACEUTICALS, LLC-JHP201300516

PATIENT
  Age: 60 Year
  Sex: Male

DRUGS (4)
  1. DANTRIUM [Suspect]
     Indication: NEUROLEPTIC MALIGNANT SYNDROME
     Dosage: 800 MG, DAILY
     Route: 042
     Dates: start: 20130729, end: 201308
  2. BROMOCRIPTINE [Concomitant]
     Indication: NEUROLEPTIC MALIGNANT SYNDROME
  3. NOZINAN [Concomitant]
     Indication: SCHIZOPHRENIA
  4. SOLIAN [Concomitant]
     Indication: SCHIZOPHRENIA

REACTIONS (4)
  - Infusion site extravasation [Recovered/Resolved with Sequelae]
  - Infusion site cellulitis [Recovering/Resolving]
  - Erythema [Recovered/Resolved]
  - Oedema peripheral [Recovered/Resolved]
